FAERS Safety Report 7285367-1 (Version None)
Quarter: 2011Q1

REPORT INFORMATION
  Report Type: 
  Country: None (occurrence: None)
  Receive Date: 20110121
  Receipt Date: 20100702
  Transmission Date: 20110831
  Serious: No
  Sender: FDA-Public Use
  Company Number: AE 2010-144

PATIENT
  Age: 53 Year
  Sex: Male
  Weight: 131.0895 kg

DRUGS (2)
  1. FAZACLO ODT [Suspect]
     Indication: SCHIZOPHRENIA, PARANOID TYPE
     Dosage: 400 - 800 MG DAILY PO
     Route: 048
     Dates: start: 20081201
  2. HYDROCODONE/ACETAMINOPHEN (MANUFACTURER UNKNOWN) [Suspect]
     Indication: PAIN

REACTIONS (2)
  - INSOMNIA [None]
  - AKATHISIA [None]
